FAERS Safety Report 4611748-8 (Version None)
Quarter: 2005Q2

REPORT INFORMATION
  Report Type: 
  Country: None (occurrence: None)
  Receive Date: 20050311
  Receipt Date: 20041215
  Transmission Date: 20051028
  Serious: No
  Sender: FDA-Public Use
  Company Number: 2004-BP-13897BP

PATIENT
  Age: 89 Year
  Sex: Female

DRUGS (9)
  1. SPIRIVA [Suspect]
     Indication: ASTHMA
     Dosage: 18 MCG (18 MCG), IH
     Route: 055
  2. ........ [Concomitant]
  3. COREG [Concomitant]
  4. LASIX [Concomitant]
  5. THEOPHYLLINE [Concomitant]
  6. ALBUTEROL [Concomitant]
  7. LOMOTIL [Concomitant]
  8. MINITRIN [Concomitant]
  9. OSCAL (CALCIUM CARBONATE) [Concomitant]

REACTIONS (3)
  - DRY MOUTH [None]
  - DRY THROAT [None]
  - NASAL DRYNESS [None]
